FAERS Safety Report 5131079-X (Version None)
Quarter: 2006Q3

REPORT INFORMATION
  Report Type: 
  Country: None (occurrence: None)
  Receive Date: 20060825
  Receipt Date: 20050627
  Transmission Date: 20061208
  Serious: Yes (Hospitalization)
  Sender: FDA-Public Use
  Company Number: 2005074362

PATIENT
  Age: 65 Year
  Sex: Male

DRUGS (2)
  1. VFEND [Suspect]
     Indication: ASPERGILLOSIS
  2. ERLOTINIB (ERLOTINIB) [Suspect]
     Indication: LUNG NEOPLASM MALIGNANT
     Dosage: (150 MG , DAILY)
     Dates: end: 20050505

REACTIONS (2)
  - FOLLICULITIS [None]
  - RASH PRURITIC [None]
